FAERS Safety Report 8219681 (Version 2)
Quarter: 2012Q4

REPORT INFORMATION
  Report Type: 
  Country: US (occurrence: US)
  Receive Date: 20111101
  Receipt Date: 20121023
  Transmission Date: 20130627
  Serious: No
  Sender: FDA-Public Use
  Company Number: US-AMGEN-USASP2011029140

PATIENT
  Age: 39 Year
  Sex: Female
  Weight: 98.41 kg

DRUGS (6)
  1. ENBREL [Suspect]
     Indication: RHEUMATOID ARTHRITIS
     Dosage: 50 mg, qwk
     Dates: start: 20110519, end: 20110929
  2. BENLYSTA [Concomitant]
     Indication: SYSTEMIC LUPUS ERYTHEMATOSUS
  3. BISOPROLOL [Concomitant]
  4. VITAMIN D /00107901/ [Concomitant]
  5. IMURAN                             /00001501/ [Concomitant]
  6. METFORMIN [Concomitant]

REACTIONS (2)
  - Fatigue [Recovered/Resolved]
  - Pain [Recovered/Resolved]
